FAERS Safety Report 21803435 (Version 1)
Quarter: 2023Q1

REPORT INFORMATION
  Report Type: Spontaneous
  Country: US (occurrence: US)
  Receive Date: 20230101
  Receipt Date: 20230101
  Transmission Date: 20230417
  Serious: No
  Sender: FDA-Public Use
  Company Number: US-BIOVITRUM-2022US15935

PATIENT
  Sex: Female
  Weight: 9 kg

DRUGS (3)
  1. SYNAGIS [Suspect]
     Active Substance: PALIVIZUMAB
     Indication: Premature baby
     Dates: start: 202202
  2. CIMETIDINE [Concomitant]
     Active Substance: CIMETIDINE
     Dosage: 300 MG/5ML SOLUTION
  3. IRON\VITAMINS [Concomitant]
     Active Substance: IRON\VITAMINS

REACTIONS (2)
  - Illness [Unknown]
  - Product dose omission issue [Unknown]
